FAERS Safety Report 5988763-5 (Version None)
Quarter: 2008Q4

REPORT INFORMATION
  Report Type: 
  Country: None (occurrence: None)
  Receive Date: 20081210
  Receipt Date: 20081202
  Transmission Date: 20090506
  Serious: Yes (Death, Other)
  Sender: FDA-Public Use
  Company Number: PHHY2008JP26634

PATIENT
  Sex: Male
  Weight: 65 kg

DRUGS (6)
  1. ZOMETA [Suspect]
     Indication: BONE PAIN
     Dosage: 4 MG, ONCE/SINGLE
     Route: 042
     Dates: start: 20080421, end: 20080421
  2. ZOMETA [Suspect]
     Indication: METASTASES TO BONE
     Dosage: 4 MG, ONCE/SINGLE
     Route: 042
     Dates: start: 20080514, end: 20080514
  3. OXYCONTIN [Concomitant]
     Indication: BONE PAIN
     Dosage: 10 MG
     Route: 048
     Dates: start: 20080418, end: 20080501
  4. NOVAMIN [Concomitant]
     Indication: NAUSEA
     Dosage: 15 MG
     Route: 048
     Dates: start: 20080418, end: 20080425
  5. MAGMITT KENEI [Concomitant]
     Indication: CONSTIPATION
     Dosage: 990 MG
     Route: 048
     Dates: start: 20080418, end: 20080425
  6. PURSENNID                               /SCH/ [Concomitant]
     Indication: CONSTIPATION
     Dosage: 24 MG
     Route: 048
     Dates: start: 20080418, end: 20080502

REACTIONS (14)
  - ALANINE AMINOTRANSFERASE INCREASED [None]
  - ASPARTATE AMINOTRANSFERASE INCREASED [None]
  - BLOOD CREATININE INCREASED [None]
  - BLOOD LACTATE DEHYDROGENASE INCREASED [None]
  - ENZYME ABNORMALITY [None]
  - GAMMA-GLUTAMYLTRANSFERASE INCREASED [None]
  - INADEQUATE DIET [None]
  - LETHARGY [None]
  - MALAISE [None]
  - MALIGNANT NEOPLASM PROGRESSION [None]
  - PYREXIA [None]
  - RENAL IMPAIRMENT [None]
  - SPEECH DISORDER [None]
  - TUMOUR LYSIS SYNDROME [None]
